FAERS Safety Report 5720214-8 (Version None)
Quarter: 2008Q2

REPORT INFORMATION
  Report Type: 
  Country: None (occurrence: None)
  Receive Date: 20080428
  Receipt Date: 20070924
  Transmission Date: 20081010
  Serious: No
  Sender: FDA-Public Use
  Company Number: US-AMGEN-US244548

PATIENT
  Sex: Female

DRUGS (5)
  1. SENSIPAR [Suspect]
     Indication: HYPERPARATHYROIDISM PRIMARY
     Route: 065
     Dates: start: 20070701, end: 20071001
  2. TOPROL-XL [Concomitant]
     Route: 065
  3. COUMADIN [Concomitant]
     Route: 065
  4. FIORICET [Concomitant]
     Route: 065
  5. NORVASC [Concomitant]
     Route: 065

REACTIONS (5)
  - FATIGUE [None]
  - HYPERHIDROSIS [None]
  - HYPOAESTHESIA [None]
  - MUSCLE SPASMS [None]
  - SKIN DISCOLOURATION [None]
